FAERS Safety Report 5961159-8 (Version None)
Quarter: 2008Q4

REPORT INFORMATION
  Report Type: 
  Country: None (occurrence: None)
  Receive Date: 20081119
  Receipt Date: 20081105
  Transmission Date: 20090506
  Serious: Yes (Hospitalization)
  Sender: FDA-Public Use
  Company Number: CQT2-2008-00032

PATIENT
  Age: 51 Year
  Sex: Male
  Weight: 63 kg

DRUGS (5)
  1. ANAGRELIDE HCL [Suspect]
     Indication: ESSENTIAL THROMBOCYTHAEMIA
     Dosage: 2.0 MG DAILY (DIVIDED INTO TWO DOSES), ORAL
     Route: 048
     Dates: start: 20070330, end: 20080829
  2. GABAPENTIN [Concomitant]
  3. TRAMADOL HCL [Concomitant]
  4. INSULIN NOVORAPID (INSULIN ASPART) INJECTION [Concomitant]
  5. INSULATARD [Concomitant]

REACTIONS (1)
  - BLOOD POTASSIUM INCREASED [None]
